FAERS Safety Report 7460087-9 (Version None)
Quarter: 2011Q2

REPORT INFORMATION
  Report Type: 
  Country: None (occurrence: None)
  Receive Date: 20110505
  Receipt Date: 20110420
  Transmission Date: 20111010
  Serious: Yes (Hospitalization, Other)
  Sender: FDA-Public Use
  Company Number: PHHY2011US37005

PATIENT
  Age: 54 Year
  Sex: Female

DRUGS (3)
  1. NILOTINIB [Suspect]
     Indication: CHRONIC MYELOID LEUKAEMIA
     Dosage: 400 MG, UNK
     Dates: start: 20040901
  2. NILOTINIB [Suspect]
     Dosage: 800 MG, UNK
  3. NILOTINIB [Suspect]
     Dosage: 400 MG, BID
     Dates: start: 20041101

REACTIONS (15)
  - LIMB DISCOMFORT [None]
  - FEMORAL ARTERIAL STENOSIS [None]
  - ARTERIOSCLEROSIS [None]
  - PRURITUS [None]
  - ANGINA UNSTABLE [None]
  - CHEST PAIN [None]
  - XERODERMA [None]
  - PERIPHERAL ARTERIAL OCCLUSIVE DISEASE [None]
  - CHEST DISCOMFORT [None]
  - RENAL ARTERY FIBROMUSCULAR DYSPLASIA [None]
  - BLOOD AMYLASE INCREASED [None]
  - LIPASE INCREASED [None]
  - DYSPNOEA EXERTIONAL [None]
  - ELECTROCARDIOGRAM QT PROLONGED [None]
  - BLOOD GLUCOSE INCREASED [None]
